FAERS Safety Report 9340680 (Version 2)
Quarter: 2013Q2

REPORT INFORMATION
  Report Type: Report from Study
  Country: KR (occurrence: KR)
  Receive Date: 20130610
  Receipt Date: 20130614
  Transmission Date: 20140414
  Serious: Yes (Death)
  Sender: FDA-Public Use
  Company Number: KR-GLAXOSMITHKLINE-B0856520B

PATIENT
  Age: 60 Year
  Sex: Male
  Weight: 48 kg

DRUGS (4)
  1. HYCAMTIN [Suspect]
     Indication: SMALL CELL LUNG CANCER
     Dosage: 3MG PER DAY
     Route: 048
     Dates: start: 20121116
  2. MEGACE [Concomitant]
     Indication: CACHEXIA
     Dosage: 20ML PER DAY
     Route: 048
     Dates: start: 20121113, end: 20130320
  3. ULTRACET [Concomitant]
     Indication: PAIN
     Dosage: 2TAB PER DAY
     Route: 048
     Dates: start: 20130429, end: 20130429
  4. PAIN MEDICATION [Concomitant]
     Indication: PAIN
     Dosage: 2TAB PER DAY
     Route: 048
     Dates: start: 20130305, end: 20130325

REACTIONS (1)
  - Lung neoplasm malignant [Fatal]
